FAERS Safety Report 25592060 (Version 1)
Quarter: 2025Q3

REPORT INFORMATION
  Report Type: Spontaneous
  Country: US (occurrence: None)
  Receive Date: 20250722
  Receipt Date: 20250722
  Transmission Date: 20251021
  Serious: Yes (Other)
  Sender: FDA-CTU
  Company Number: None

PATIENT
  Age: 25 Year
  Sex: Female
  Weight: 80.74 kg

DRUGS (3)
  1. DOTTI [Suspect]
     Active Substance: ESTRADIOL
     Indication: Ovarian failure
     Dosage: 1 PATCH TWICE/WEEK TRANSDERMAL
     Route: 062
     Dates: start: 20250528, end: 20250708
  2. Progesterone Micronized [Concomitant]
  3. PROVERA [Suspect]
     Active Substance: MEDROXYPROGESTERONE ACETATE

REACTIONS (4)
  - Application site rash [None]
  - Anxiety [None]
  - Anger [None]
  - Depression [None]

NARRATIVE: CASE EVENT DATE: 20250707
